FAERS Safety Report 5406123-2 (Version None)
Quarter: 2007Q3

REPORT INFORMATION
  Report Type: 
  Country: None (occurrence: None)
  Receive Date: 20070802
  Receipt Date: 20070802
  Transmission Date: 20080115
  Serious: Yes (Hospitalization)
  Sender: FDA-Public Use
  Company Number: None

PATIENT
  Age: 73 Year
  Sex: Male
  Weight: 93.8946 kg

DRUGS (10)
  1. SEROQUEL [Suspect]
     Dosage: QD (DAILY) ORAL
     Route: 048
  2. SEROQUEL [Suspect]
  3. ERATADINE [Concomitant]
  4. NEXIUM [Concomitant]
  5. CITALOPRAM HYDROBROMIDE [Concomitant]
  6. FUROSEMIDE [Concomitant]
  7. VERAPAMIL [Concomitant]
  8. OXYBUTYNIN CHLORIDE [Concomitant]
  9. RAZADYNE [Concomitant]
  10. METAMUCIL [Concomitant]

REACTIONS (2)
  - FALL [None]
  - TENDON RUPTURE [None]
